FAERS Safety Report 5012113-4 (Version None)
Quarter: 2006Q2

REPORT INFORMATION
  Report Type: 
  Country: None (occurrence: None)
  Receive Date: 20060524
  Receipt Date: 20060515
  Transmission Date: 20061013
  Serious: Yes (Other)
  Sender: FDA-Public Use
  Company Number: 2006S1000122

PATIENT
  Sex: Female

DRUGS (1)
  1. SORIATANE [Suspect]
     Dosage: PO
     Route: 048
     Dates: end: 20050401

REACTIONS (1)
  - DRUG EXPOSURE BEFORE PREGNANCY [None]
